FAERS Safety Report 20432415 (Version 1)
Quarter: 2022Q1

REPORT INFORMATION
  Report Type: Spontaneous
  Country: AU (occurrence: AU)
  Receive Date: 20220204
  Receipt Date: 20220204
  Transmission Date: 20220423
  Serious: Yes (Other)
  Sender: FDA-Public Use
  Company Number: AU-TEVA-2022-AU-2004688

PATIENT
  Sex: Male

DRUGS (2)
  1. IMATINIB [Suspect]
     Active Substance: IMATINIB
     Indication: Chronic myeloid leukaemia
     Route: 065
     Dates: start: 20050801, end: 20070101
  2. DASATINIB [Suspect]
     Active Substance: DASATINIB
     Route: 065

REACTIONS (4)
  - Renal impairment [Unknown]
  - Drug intolerance [Unknown]
  - Hepatic function abnormal [Unknown]
  - Pleural effusion [Unknown]
